FAERS Safety Report 20191489 (Version 1)
Quarter: 2021Q4

REPORT INFORMATION
  Report Type: Report from Study
  Country: MX (occurrence: MX)
  Receive Date: 20211216
  Receipt Date: 20211216
  Transmission Date: 20220303
  Serious: Yes (Death)
  Sender: FDA-Public Use
  Company Number: MX-ROCHE-2975264

PATIENT
  Age: 76 Year
  Sex: Female

DRUGS (1)
  1. MIRCERA [Suspect]
     Active Substance: METHOXY POLYETHYLENE GLYCOL-EPOETIN BETA
     Indication: Nephrogenic anaemia
     Route: 058
     Dates: start: 20210728, end: 20211126

REACTIONS (2)
  - Pancreatic carcinoma [Fatal]
  - Colon cancer [Fatal]

NARRATIVE: CASE EVENT DATE: 20210101
